FAERS Safety Report 19453819 (Version 2)
Quarter: 2022Q2

REPORT INFORMATION
  Report Type: Spontaneous
  Country: US (occurrence: US)
  Receive Date: 20210623
  Receipt Date: 20220630
  Transmission Date: 20220720
  Serious: No
  Sender: FDA-Public Use
  Company Number: US-BAYER-2021-162714

PATIENT
  Age: 44 Year
  Sex: Female

DRUGS (3)
  1. CLIMARA [Suspect]
     Active Substance: ESTRADIOL
     Dosage: 0.05 MG
     Route: 062
     Dates: start: 202101
  2. HIGH BLOOD PRESSURURE [Concomitant]
  3. ESTRADIOL [Concomitant]
     Active Substance: ESTRADIOL

REACTIONS (5)
  - Product physical issue [None]
  - Device material issue [None]
  - Device adhesion issue [None]
  - Incorrect dose administered by device [None]
  - Product dose omission issue [None]

NARRATIVE: CASE EVENT DATE: 20210101
